FAERS Safety Report 14830992 (Version 1)
Quarter: 2018Q2

REPORT INFORMATION
  Report Type: Report from Study
  Country: BR (occurrence: BR)
  Receive Date: 20180430
  Receipt Date: 20180430
  Transmission Date: 20180711
  Serious: Yes (Other)
  Sender: FDA-Public Use
  Company Number: BR-SHIRE-BR201815264

PATIENT

DRUGS (1)
  1. FACTOR VIII INHIBITOR BYPASSING FRACTION [Suspect]
     Active Substance: ANTI-INHIBITOR COAGULANT COMPLEX
     Indication: PRODUCT USED FOR UNKNOWN INDICATION
     Dosage: 500 IU, 2X/DAY:BID (EVERY 12 HOURS, FIRST DOSE SHOULD BE ADMINISTERED BEFORE 1 HOUR THE PROCEDURE)
     Route: 042

REACTIONS (2)
  - Laryngeal granuloma [Unknown]
  - Laryngeal obstruction [Unknown]
